FAERS Safety Report 17555440 (Version 3)
Quarter: 2020Q2

REPORT INFORMATION
  Report Type: Spontaneous
  Country: US (occurrence: US)
  Receive Date: 20200318
  Receipt Date: 20200402
  Transmission Date: 20200713
  Serious: No
  Sender: FDA-Public Use
  Company Number: US-AMGEN-USASP2020003514

PATIENT
  Age: 65 Year
  Sex: Male

DRUGS (5)
  1. METFORMIN [Concomitant]
     Active Substance: METFORMIN HYDROCHLORIDE
     Dosage: UNK
     Route: 065
     Dates: start: 201905
  2. REPATHA [Suspect]
     Active Substance: EVOLOCUMAB
     Indication: BLOOD CHOLESTEROL
     Dosage: 140 MILLIGRAM, Q2WK
     Route: 065
     Dates: start: 201906
  3. BISOPROLOL [Concomitant]
     Active Substance: BISOPROLOL
  4. REPATHA [Suspect]
     Active Substance: EVOLOCUMAB
     Indication: LOW DENSITY LIPOPROTEIN INCREASED
     Dosage: 140 MILLIGRAM, QMO
     Route: 065
     Dates: start: 201908
  5. REPATHA [Suspect]
     Active Substance: EVOLOCUMAB
     Indication: HYPERCHOLESTEROLAEMIA
     Dosage: 140 MILLIGRAM, Q2WK
     Route: 065

REACTIONS (16)
  - Blood creatinine increased [Recovered/Resolved]
  - Blood bilirubin increased [Unknown]
  - Dry eye [Unknown]
  - Hepatic enzyme increased [Unknown]
  - Pyrexia [Unknown]
  - Injection site discolouration [Not Recovered/Not Resolved]
  - Pain in extremity [Unknown]
  - Low density lipoprotein decreased [Unknown]
  - Pollakiuria [Recovered/Resolved]
  - Blood creatine phosphokinase increased [Unknown]
  - Injection site bruising [Unknown]
  - Glycosylated haemoglobin increased [Unknown]
  - Eye irritation [Unknown]
  - Back pain [Recovered/Resolved]
  - Exostosis [Not Recovered/Not Resolved]
  - Pain [Unknown]

NARRATIVE: CASE EVENT DATE: 2019
